FAERS Safety Report 8587227-2 (Version None)
Quarter: 2012Q3

REPORT INFORMATION
  Report Type: 
  Country: None (occurrence: None)
  Receive Date: 20120810
  Receipt Date: 20110916
  Transmission Date: 20120928
  Serious: No
  Sender: FDA-Public Use
  Company Number: US-ASTRAZENECA-2011SE48896

PATIENT
  Age: 64 Year
  Sex: Female

DRUGS (5)
  1. ARIMIDEX [Suspect]
     Indication: BREAST CANCER
     Route: 048
     Dates: start: 20100601
  2. TAMOXIFEN CITRATE [Concomitant]
  3. LEVOTHYROXINE SODIUM [Concomitant]
  4. XANAX [Concomitant]
     Indication: PAIN
     Dosage: AS REQUIRED
  5. PAXIL [Concomitant]

REACTIONS (9)
  - FATIGUE [None]
  - ARTHRALGIA [None]
  - WEIGHT INCREASED [None]
  - THYROID DISORDER [None]
  - DEPRESSION [None]
  - TRIGGER FINGER [None]
  - ALOPECIA [None]
  - MYALGIA [None]
  - HUNGER [None]
